FAERS Safety Report 8577680-2 (Version None)
Quarter: 2012Q3

REPORT INFORMATION
  Report Type: 
  Country: None (occurrence: None)
  Receive Date: 20120807
  Receipt Date: 20120801
  Transmission Date: 20120928
  Serious: Yes (Other)
  Sender: FDA-Public Use
  Company Number: DE-ABBOTT-12P-062-0929727-00

PATIENT
  Sex: Male
  Weight: 70 kg

DRUGS (8)
  1. HUMIRA [Suspect]
     Indication: PSORIATIC ARTHROPATHY
     Route: 058
     Dates: start: 20060313, end: 20120301
  2. METHOTREXATE [Suspect]
     Indication: PRODUCT USED FOR UNKNOWN INDICATION
  3. NALOXONE HCL [Concomitant]
     Indication: PSORIATIC ARTHROPATHY
     Dosage: 50 MG NOS /FOUR TIMES A DAY
     Dates: start: 20120312
  4. DAIVOBET [Concomitant]
     Indication: PSORIASIS
  5. DIMETHYL FUMARATE [Suspect]
     Indication: PRODUCT USED FOR UNKNOWN INDICATION
  6. CYCLOSPORINE [Suspect]
     Indication: PRODUCT USED FOR UNKNOWN INDICATION
  7. ACITRETIN [Suspect]
     Indication: PRODUCT USED FOR UNKNOWN INDICATION
  8. IBUPROFEN [Concomitant]
     Indication: PSORIATIC ARTHROPATHY
     Dates: start: 20120312

REACTIONS (1)
  - LUNG NEOPLASM MALIGNANT [None]
